FAERS Safety Report 11444625 (Version 1)
Quarter: 2015Q3

REPORT INFORMATION
  Report Type: Spontaneous
  Country: None (occurrence: None)
  Receive Date: 20150831
  Receipt Date: 20150831
  Transmission Date: 20151125
  Serious: Yes (Disabling)
  Sender: FDA-Public Use
  Company Number: None

PATIENT
  Age: 48 Year
  Sex: Male

DRUGS (1)
  1. SUBOXONE [Suspect]
     Active Substance: BUPRENORPHINE HYDROCHLORIDE\NALOXONE HYDROCHLORIDE
     Dosage: 2 TWICE DAILY TAKEN UNDER THE TONGUE?
     Route: 060

REACTIONS (3)
  - Glossodynia [None]
  - Tongue blistering [None]
  - Feeding disorder [None]

NARRATIVE: CASE EVENT DATE: 20150829
